FAERS Safety Report 4988670-0 (Version None)
Quarter: 2006Q2

REPORT INFORMATION
  Report Type: 
  Country: None (occurrence: None)
  Receive Date: 20060426
  Receipt Date: 20060413
  Transmission Date: 20061013
  Serious: Yes (Hospitalization)
  Sender: FDA-Public Use
  Company Number: 223845

PATIENT
  Age: 43 Year
  Sex: Female

DRUGS (9)
  1. MABTHERA (RITUXIMAB) CONC FOR SOLUTION FOR INFUSION [Suspect]
     Dosage: INTRAVENOUS
     Route: 042
     Dates: end: 20060216
  2. MYCOPHENOLATE MOFETIL [Suspect]
     Dosage: ORAL
     Route: 048
     Dates: start: 20051230, end: 20060216
  3. OMEPRAZOLE [Concomitant]
  4. NEORECORMON (EPOETIN BETA) [Concomitant]
  5. FOLACIN (FOLIC ACID) [Concomitant]
  6. ORALOVITE (ASCORBIC ACID, VITAMIN B COMPLEX) [Concomitant]
  7. TRANDATE [Concomitant]
  8. FUROSEMIDE [Concomitant]
  9. PANODIL (ACETAMINOPHEN) [Concomitant]

REACTIONS (10)
  - BLOOD ALKALINE PHOSPHATASE INCREASED [None]
  - BLOOD BILIRUBIN INCREASED [None]
  - BLOOD LACTATE DEHYDROGENASE INCREASED [None]
  - CONVULSION [None]
  - DIALYSIS [None]
  - HAEMODIALYSIS [None]
  - HYPOKALAEMIA [None]
  - RENAL FAILURE [None]
  - SKIN NECROSIS [None]
  - VENTRICULAR FIBRILLATION [None]
